FAERS Safety Report 5005317-8 (Version None)
Quarter: 2006Q2

REPORT INFORMATION
  Report Type: 
  Country: None (occurrence: None)
  Receive Date: 20060515
  Receipt Date: 20060511
  Transmission Date: 20061013
  Serious: Yes (Other)
  Sender: FDA-Public Use
  Company Number: 200611406BWH

PATIENT
  Age: 68 Year
  Sex: Male

DRUGS (5)
  1. NEXAVAR [Suspect]
     Indication: RENAL CELL CARCINOMA STAGE UNSPECIFIED
     Dosage: 400 MG, BID, ORAL
     Route: 048
     Dates: start: 20060215, end: 20060403
  2. NEXAVAR [Suspect]
     Indication: RENAL CELL CARCINOMA STAGE UNSPECIFIED
     Dosage: 400 MG, BID, ORAL
     Route: 048
     Dates: start: 20060405
  3. DIOVAN [Concomitant]
  4. DILTIAZEM [Concomitant]
  5. ASPIRIN [Concomitant]

REACTIONS (10)
  - ALOPECIA [None]
  - ARTERIOSCLEROTIC RETINOPATHY [None]
  - BLOOD PRESSURE INCREASED [None]
  - CEREBROVASCULAR ACCIDENT [None]
  - IMPAIRED HEALING [None]
  - PRURITUS [None]
  - RASH [None]
  - SKIN GRAFT [None]
  - SKIN LESION [None]
  - VISION BLURRED [None]
